FAERS Safety Report 17276411 (Version 2)
Quarter: 2020Q1

REPORT INFORMATION
  Report Type: Other
  Country: None (occurrence: DE)
  Receive Date: 20200116
  Receipt Date: 20200128
  Transmission Date: 20200409
  Serious: Yes (Hospitalization, Other)
  Sender: FDA-Public Use
  Company Number: DE-BAUSCH-BL-2020-000803

PATIENT

DRUGS (3)
  1. DEXAMETHASONE. [Suspect]
     Active Substance: DEXAMETHASONE
     Indication: LYMPHOMA
     Dosage: 40 MG I.V. (15 MIN) DAY 1-4; CUMULATIVE DOSE PER CYCLE: 160 MG
     Route: 042
  2. CISPLATIN. [Suspect]
     Active Substance: CISPLATIN
     Indication: LYMPHOMA
     Dosage: 1 CYCLICAL
     Route: 042
  3. CYTARABINE. [Suspect]
     Active Substance: CYTARABINE
     Indication: LYMPHOMA
     Dosage: 2 X 0.5 G/M2, 1 CYCLICAL
     Route: 042

REACTIONS (2)
  - Bacterial sepsis [Unknown]
  - Multiple organ dysfunction syndrome [Unknown]
